FAERS Safety Report 15027318 (Version 1)
Quarter: 2018Q2

REPORT INFORMATION
  Report Type: Spontaneous
  Country: DE (occurrence: DE)
  Receive Date: 20180619
  Receipt Date: 20180619
  Transmission Date: 20180711
  Serious: Yes (Hospitalization)
  Sender: FDA-Public Use
  Company Number: DE-TEVA-2018-DE-909049

PATIENT
  Age: 76 Year
  Sex: Male
  Weight: 75 kg

DRUGS (24)
  1. REVLIMID [Suspect]
     Active Substance: LENALIDOMIDE
     Dosage: 25 MILLIGRAM DAILY;
     Route: 048
     Dates: end: 20161118
  2. ENOXAPARIN SODIUM. [Concomitant]
     Active Substance: ENOXAPARIN SODIUM
     Indication: THROMBOSIS PROPHYLAXIS
     Route: 065
  3. OXAZEPAM. [Concomitant]
     Active Substance: OXAZEPAM
     Indication: PROPHYLAXIS
     Route: 065
  4. TAMSULOSIN [Concomitant]
     Active Substance: TAMSULOSIN
     Indication: BENIGN PROSTATIC HYPERPLASIA
     Dosage: .4 MILLIGRAM DAILY;
     Route: 048
     Dates: start: 2016
  5. PANTOPRAZOLE [Concomitant]
     Active Substance: PANTOPRAZOLE
     Indication: GASTROINTESTINAL DISORDER THERAPY
     Dosage: 40 MILLIGRAM DAILY;
     Route: 048
     Dates: start: 20160912
  6. DEXAMETHASONE ORAL [Suspect]
     Active Substance: DEXAMETHASONE
     Indication: PLASMA CELL MYELOMA
     Dosage: 20 MILLIGRAM DAILY; 20 MG
     Route: 048
     Dates: start: 20160915, end: 20161117
  7. PAMIDRONATE [Concomitant]
     Active Substance: PAMIDRONATE DISODIUM
     Indication: PRODUCT USED FOR UNKNOWN INDICATION
     Route: 041
     Dates: end: 20161028
  8. COTRIMOXAZOLE [Concomitant]
     Active Substance: SULFAMETHOXAZOLE\TRIMETHOPRIM
     Indication: INFECTION PROPHYLAXIS
     Dosage: 480 MILLIGRAM DAILY;
     Route: 048
     Dates: start: 20160912
  9. POTASSIUM [Concomitant]
     Active Substance: POTASSIUM
     Indication: MINERAL SUPPLEMENTATION
     Dosage: 300 MILLIGRAM DAILY;
     Route: 048
     Dates: start: 2016
  10. ACETYLSALICYLIC ACID [Concomitant]
     Active Substance: ASPIRIN
     Indication: HYPERTENSION
     Dosage: 100 MILLIGRAM DAILY;
     Route: 048
     Dates: start: 2016
  11. VALSARTAN. [Concomitant]
     Active Substance: VALSARTAN
     Indication: HYPERTENSION
     Dosage: 80 MILLIGRAM DAILY;
     Route: 048
     Dates: start: 2016
  12. ATORVASTATIN [Concomitant]
     Active Substance: ATORVASTATIN
     Indication: PRODUCT USED FOR UNKNOWN INDICATION
     Route: 065
  13. IDEOS [Concomitant]
     Active Substance: CALCIUM CARBONATE\CHOLECALCIFEROL
     Indication: PRODUCT USED FOR UNKNOWN INDICATION
     Route: 065
  14. REVLIMID [Suspect]
     Active Substance: LENALIDOMIDE
     Dosage: 25 MILLIGRAM DAILY;
     Route: 048
     Dates: start: 20160915, end: 20161027
  15. BISOPROLOL [Concomitant]
     Active Substance: BISOPROLOL
     Indication: HYPERTENSION
     Route: 065
  16. METHYLPREDNISOLONE. [Concomitant]
     Active Substance: METHYLPREDNISOLONE
     Indication: RASH
     Dosage: 50 GRAM DAILY;
     Route: 061
     Dates: start: 20160922
  17. SIMVASTATIN. [Concomitant]
     Active Substance: SIMVASTATIN
     Indication: HYPERLIPIDAEMIA
     Dosage: 20 MILLIGRAM DAILY;
     Route: 048
     Dates: start: 2016
  18. NITREDIPINE [Concomitant]
     Indication: HYPERTENSION
     Route: 065
  19. METAMIZOLE [Concomitant]
     Active Substance: METAMIZOLE
     Indication: PAIN
     Dosage: 500 MILLIGRAM DAILY; 2000 MG
     Route: 048
     Dates: start: 2016
  20. MACROGOL [Concomitant]
     Active Substance: POLYETHYLENE GLYCOLS
     Indication: CONSTIPATION
     Route: 048
     Dates: start: 20160922
  21. ZOPICLONE [Concomitant]
     Active Substance: ZOPICLONE
     Indication: PROPHYLAXIS
     Route: 065
  22. MACROGOL [Concomitant]
     Active Substance: POLYETHYLENE GLYCOLS
     Indication: MELAENA
     Route: 065
  23. NALOXONE W/TILIDINE [Concomitant]
     Active Substance: NALOXONE HYDROCHLORIDE\TILIDINE HYDROCHLORIDE
     Indication: PROCEDURAL PAIN
     Dosage: 50 MILLIGRAM DAILY; 50/4 MG
     Route: 048
     Dates: start: 20160915
  24. CIPROFLOXACIN. [Concomitant]
     Active Substance: CIPROFLOXACIN
     Indication: NASOPHARYNGITIS
     Dosage: 500 MILLIGRAM DAILY; 1000
     Route: 048
     Dates: start: 20161013

REACTIONS (3)
  - Rash generalised [Recovered/Resolved]
  - Nasopharyngitis [Recovered/Resolved]
  - Rash generalised [Recovered/Resolved]

NARRATIVE: CASE EVENT DATE: 20161020
